FAERS Safety Report 9320831 (Version 1)
Quarter: 2013Q2

REPORT INFORMATION
  Report Type: Spontaneous
  Country: FR (occurrence: FR)
  Receive Date: 20130531
  Receipt Date: 20130531
  Transmission Date: 20140414
  Serious: Yes (Hospitalization)
  Sender: FDA-Public Use
  Company Number: FR-009507513-1305FRA012875

PATIENT
  Age: 79 Year
  Sex: Male

DRUGS (7)
  1. SINEMET 250 MG/25 MG COMPRIME SECABLE [Suspect]
     Indication: EXTRAPYRAMIDAL DISORDER
     Dosage: 1 DF, QD
     Route: 048
     Dates: start: 201206, end: 20120917
  2. COOLMETEC [Suspect]
     Indication: HYPERTENSION
     Dosage: 40 MG, UNK
     Route: 048
     Dates: end: 20120917
  3. TOPALGIC LP [Suspect]
     Indication: PAIN
     Dosage: 150 MG, BID
     Route: 048
     Dates: end: 20120917
  4. STAGID [Suspect]
     Indication: TYPE 2 DIABETES MELLITUS
     Dosage: 700 MG, TID
     Route: 048
     Dates: end: 20120917
  5. PERMIXON [Suspect]
     Indication: MICTURITION DISORDER
     Dosage: 160 MG, QD
     Route: 048
     Dates: end: 20120917
  6. EFFERALGAN [Suspect]
     Indication: PAIN
     Dosage: 1 G, QD
     Route: 048
     Dates: end: 20120917
  7. RILMENIDINE [Suspect]
     Indication: HYPERTENSION
     Dosage: UNK
     Route: 048
     Dates: end: 20120917

REACTIONS (5)
  - Confusional state [Recovered/Resolved]
  - Hallucination [Recovered/Resolved]
  - Vomiting [Recovered/Resolved]
  - Urinary retention [None]
  - Hyponatraemia [None]
